FAERS Safety Report 15563156 (Version 1)
Quarter: 2018Q4

REPORT INFORMATION
  Report Type: Report from Study
  Country: DE (occurrence: DE)
  Receive Date: 20181029
  Receipt Date: 20181029
  Transmission Date: 20190205
  Serious: Yes (Other)
  Sender: FDA-Public Use
  Company Number: DE-BAUSCH-BL-2018-018860

PATIENT
  Sex: Male
  Weight: 68 kg

DRUGS (14)
  1. DEXAMETHASONE. [Suspect]
     Active Substance: DEXAMETHASONE
     Indication: PLASMA CELL MYELOMA
     Route: 065
     Dates: start: 20180516
  2. KYPROLIS [Suspect]
     Active Substance: CARFILZOMIB
     Indication: PLASMA CELL MYELOMA
     Route: 042
     Dates: start: 20180516, end: 20180517
  3. RAMIPRIL BETA [Concomitant]
     Active Substance: RAMIPRIL
     Indication: HYPERTONIA
     Dates: end: 201805
  4. HYDROMORPHON RATIOPHARM [Concomitant]
     Indication: PAIN
     Dosage: AS NECESSARY
     Dates: start: 20180601
  5. ZOMETA [Concomitant]
     Active Substance: ZOLEDRONIC ACID
     Indication: PROPHYLAXIS
     Dates: start: 20161006
  6. KYPROLIS [Suspect]
     Active Substance: CARFILZOMIB
     Route: 042
     Dates: start: 20180524, end: 20180627
  7. PANTOPRAZOL BETA [Concomitant]
     Indication: PROPHYLAXIS
  8. PREGABALIN. [Concomitant]
     Active Substance: PREGABALIN
     Indication: PAIN
  9. INNOHEP [Concomitant]
     Active Substance: TINZAPARIN SODIUM
     Indication: PRODUCT USED FOR UNKNOWN INDICATION
     Dates: start: 201805, end: 2018
  10. HYDROMORPHONHYDROCHLORID BETA [Concomitant]
     Indication: PAIN
     Dates: start: 2016
  11. UNACID (SULTAMICILLIN TOSILATE) [Concomitant]
     Active Substance: SULTAMICILLIN TOSYLATE
     Indication: PRODUCT USED FOR UNKNOWN INDICATION
     Dates: start: 20180525, end: 2018
  12. FUROSEMID RATIOPHARM [Concomitant]
     Indication: PRODUCT USED FOR UNKNOWN INDICATION
     Dates: start: 201805, end: 2018
  13. TORASEMID BETA [Concomitant]
     Indication: DYSPNOEA
     Dates: start: 20180601
  14. KALINOR (POTASSIUM CHLORIDE) [Concomitant]
     Active Substance: POTASSIUM CHLORIDE
     Indication: PRODUCT USED FOR UNKNOWN INDICATION
     Dates: start: 201805, end: 20180608

REACTIONS (4)
  - Blood creatinine increased [Recovered/Resolved]
  - Dyspnoea [Recovered/Resolved]
  - Cardiac failure [Recovered/Resolved]
  - Neutropenia [Recovered/Resolved]

NARRATIVE: CASE EVENT DATE: 20180611
